FAERS Safety Report 20348367 (Version 2)
Quarter: 2022Q1

REPORT INFORMATION
  Report Type: Spontaneous
  Country: US (occurrence: US)
  Receive Date: 20220119
  Receipt Date: 20220224
  Transmission Date: 20220424
  Serious: Yes (Other)
  Sender: FDA-Public Use
  Company Number: US-MTPC-MTDA2022-0000626

PATIENT
  Sex: Male

DRUGS (1)
  1. RADICAVA [Suspect]
     Active Substance: EDARAVONE
     Indication: Amyotrophic lateral sclerosis
     Dosage: STANDARD DOSING
     Route: 065
     Dates: start: 20210712, end: 20211210

REACTIONS (7)
  - Haemorrhage [Recovered/Resolved]
  - Coagulopathy [Recovered/Resolved]
  - Movement disorder [Unknown]
  - Therapeutic product effect decreased [Unknown]
  - Contusion [Unknown]
  - Mobility decreased [Unknown]
  - Inappropriate schedule of product discontinuation [Unknown]
